FAERS Safety Report 22094212 (Version 1)
Quarter: 2023Q1

REPORT INFORMATION
  Report Type: Spontaneous
  Country: CA (occurrence: None)
  Receive Date: 20230314
  Receipt Date: 20230314
  Transmission Date: 20230417
  Serious: Yes (Life-Threatening, Hospitalization, Disabling, Other)
  Sender: FDA-Public Use
  Company Number: None

PATIENT
  Age: 63 Year
  Sex: Female
  Weight: 58.5 kg

DRUGS (3)
  1. TEMAZEPAM [Suspect]
     Active Substance: TEMAZEPAM
     Indication: Insomnia
     Dosage: 4 CAPSULES AT BEDTIME ORAL?
     Route: 048
  2. TEMAZEPAM 120MG [Concomitant]
  3. NAPROXEN [Concomitant]
     Active Substance: NAPROXEN

REACTIONS (13)
  - Dizziness [None]
  - Fall [None]
  - Hip fracture [None]
  - Device breakage [None]
  - Bone contusion [None]
  - Upper limb fracture [None]
  - Upper limb fracture [None]
  - Suicidal ideation [None]
  - Road traffic accident [None]
  - Hepatic failure [None]
  - Bedridden [None]
  - Impaired healing [None]
  - Drug tolerance [None]

NARRATIVE: CASE EVENT DATE: 20221012
